FAERS Safety Report 13822339 (Version 3)
Quarter: 2019Q4

REPORT INFORMATION
  Report Type: Spontaneous
  Country: DE (occurrence: DE)
  Receive Date: 20170801
  Receipt Date: 20191217
  Transmission Date: 20200122
  Serious: Yes (Congenital Anomaly, Other)
  Sender: FDA-Public Use
  Company Number: DE-TEVA-791003GER

PATIENT
  Age: 1 Day
  Sex: Female
  Weight: 2.82 kg

DRUGS (3)
  1. RED BLOOD CELLS, CONCENTRATED [Concomitant]
     Active Substance: HUMAN RED BLOOD CELL
     Indication: IRON DEFICIENCY ANAEMIA
     Route: 064
  2. VENLAFAXINE [Suspect]
     Active Substance: VENLAFAXINE HYDROCHLORIDE
     Indication: DEPRESSION
     Dosage: 37.5 MG/2-3 D / INITIAL 37.5MG EVERY 2ND DAY, DURING THE 3RD TRIMESTER ONLY 37.5 MG EVERY THIRD DAY
     Route: 064
     Dates: start: 20160527, end: 20170223
  3. FEMIBION [Concomitant]
     Indication: PROPHYLAXIS OF NEURAL TUBE DEFECT
     Route: 064

REACTIONS (6)
  - Prothrombin time prolonged [Recovered/Resolved]
  - Atrial septal defect [Not Recovered/Not Resolved]
  - Patent ductus arteriosus [Unknown]
  - Respiratory disorder neonatal [Recovered/Resolved]
  - Foetal exposure during pregnancy [Unknown]
  - Congenital naevus [Not Recovered/Not Resolved]

NARRATIVE: CASE EVENT DATE: 20170223
